FAERS Safety Report 24670781 (Version 4)
Quarter: 2025Q1

REPORT INFORMATION
  Report Type: Report from Study
  Country: MX (occurrence: MX)
  Receive Date: 20241127
  Receipt Date: 20250220
  Transmission Date: 20250408
  Serious: Yes (Other)
  Sender: NOVARTIS
  Company Number: MX-002147023-NVSC2024MX226828

PATIENT
  Age: 80 Year
  Sex: Female
  Weight: 93 kg

DRUGS (4)
  1. INCLISIRAN [Suspect]
     Active Substance: INCLISIRAN
     Indication: Blood cholesterol increased
     Route: 058
     Dates: start: 202409, end: 202409
  2. INCLISIRAN [Suspect]
     Active Substance: INCLISIRAN
     Route: 058
     Dates: start: 202409
  3. EDARBI [Concomitant]
     Active Substance: AZILSARTAN KAMEDOXOMIL
     Indication: Hypertension
     Dosage: 80 MG, QD
     Route: 048
     Dates: start: 2018
  4. LEVOTHYROXINE SODIUM [Concomitant]
     Active Substance: LEVOTHYROXINE SODIUM
     Indication: Thyroid disorder
     Dosage: 150 MG, QD (30 YEARS AGO)
     Route: 048

REACTIONS (6)
  - Blood pressure fluctuation [Recovered/Resolved]
  - Colitis [Recovering/Resolving]
  - Weight increased [Recovered/Resolved]
  - Off label use [Unknown]
  - Abdominal discomfort [Recovering/Resolving]
  - Gastritis [Recovering/Resolving]

NARRATIVE: CASE EVENT DATE: 20240901
